FAERS Safety Report 9788524 (Version 1)
Quarter: 2013Q4

REPORT INFORMATION
  Report Type: Spontaneous
  Country: US (occurrence: US)
  Receive Date: 20131230
  Receipt Date: 20131230
  Transmission Date: 20140711
  Serious: Yes (Hospitalization)
  Sender: FDA-Public Use
  Company Number: US-BAYER-2013-154947

PATIENT
  Age: 22 Year
  Sex: Female

DRUGS (1)
  1. MOXIFLOXACIN ORAL [Suspect]
     Indication: INFECTION
     Dosage: DAILY DOSE 400 MG
     Route: 048

REACTIONS (1)
  - Myasthenia gravis [None]
